FAERS Safety Report 4933933-8 (Version None)
Quarter: 2006Q1

REPORT INFORMATION
  Report Type: 
  Country: None (occurrence: None)
  Receive Date: 20060307
  Receipt Date: 20060224
  Transmission Date: 20060701
  Serious: Yes (Hospitalization)
  Sender: FDA-Public Use
  Company Number: US-BOEHRINGER INGELHEIM PHARMACEUTICALS, INC.-2006-DE-01065GD

PATIENT
  Age: 6 Year
  Sex: Male

DRUGS (2)
  1. CLONIDINE [Suspect]
     Route: 048
  2. CLONIDINE [Suspect]
     Route: 048

REACTIONS (7)
  - ACCIDENTAL DRUG INTAKE BY CHILD [None]
  - DRUG TOXICITY [None]
  - HYPOTENSION [None]
  - LETHARGY [None]
  - MIOSIS [None]
  - SINUS BRADYCARDIA [None]
  - SOMNOLENCE [None]
